FAERS Safety Report 8804018 (Version 1)
Quarter: 2012Q4

REPORT INFORMATION
  Report Type: 
  Country: BE (occurrence: BE)
  Receive Date: 20120924
  Receipt Date: 20120924
  Transmission Date: 20130627
  Serious: Yes (Death, Other)
  Sender: FDA-Public Use
  Company Number: BE-JNJFOC-20120905963

PATIENT

DRUGS (1)
  1. FENTANYL [Suspect]
     Indication: PRODUCT USED FOR UNKNOWN INDICATION
     Route: 062

REACTIONS (9)
  - Overdose [Fatal]
  - Adverse event [Unknown]
  - Intentional drug misuse [Unknown]
  - Accidental exposure to product [Unknown]
  - Wrong technique in drug usage process [Unknown]
  - Wrong technique in drug usage process [Unknown]
  - Accidental exposure to product [Unknown]
  - Wrong technique in drug usage process [Unknown]
  - Application site reaction [Unknown]
